FAERS Safety Report 14083595 (Version 2)
Quarter: 2017Q4

REPORT INFORMATION
  Report Type: Report from Study
  Country: None (occurrence: CA)
  Receive Date: 20171013
  Receipt Date: 20171019
  Transmission Date: 20180321
  Serious: Yes (Other)
  Sender: FDA-Public Use
  Company Number: CA-ABBVIE-17K-028-2124488-00

PATIENT
  Age: 66 Year
  Sex: Male

DRUGS (1)
  1. HUMIRA [Suspect]
     Active Substance: ADALIMUMAB
     Indication: CROHN^S DISEASE
     Route: 058
     Dates: start: 20130211

REACTIONS (8)
  - Intentional product misuse [Unknown]
  - Anal abscess [Recovered/Resolved]
  - Abdominal mass [Not Recovered/Not Resolved]
  - Intestinal obstruction [Recovered/Resolved]
  - Anorectal discomfort [Unknown]
  - Crohn^s disease [Not Recovered/Not Resolved]
  - Incision site complication [Not Recovered/Not Resolved]
  - Device related infection [Recovered/Resolved]

NARRATIVE: CASE EVENT DATE: 2015
